FAERS Safety Report 25553567 (Version 4)
Quarter: 2025Q3

REPORT INFORMATION
  Report Type: Report from Study
  Country: US (occurrence: US)
  Receive Date: 20250715
  Receipt Date: 20250913
  Transmission Date: 20251021
  Serious: Yes (Other)
  Sender: ABBVIE
  Company Number: US-ABBVIE-6366733

PATIENT
  Age: 64 Year
  Sex: Male

DRUGS (3)
  1. RINVOQ [Suspect]
     Active Substance: UPADACITINIB
     Indication: Rheumatoid arthritis
     Route: 048
     Dates: start: 20250502
  2. RINVOQ [Suspect]
     Active Substance: UPADACITINIB
     Indication: Rheumatoid arthritis
     Route: 048
     Dates: start: 20250601
  3. IMODIUM [Concomitant]
     Active Substance: LOPERAMIDE HYDROCHLORIDE
     Indication: Product used for unknown indication
     Route: 048

REACTIONS (10)
  - Large intestinal haemorrhage [Recovering/Resolving]
  - Adverse drug reaction [Unknown]
  - Blood pressure increased [Recovering/Resolving]
  - Headache [Recovering/Resolving]
  - Large intestine infection [Recovering/Resolving]
  - Scab [Unknown]
  - Skin haemorrhage [Unknown]
  - Large intestine perforation [Unknown]
  - Crohn^s disease [Unknown]
  - Rash [Unknown]

NARRATIVE: CASE EVENT DATE: 20250101
